FAERS Safety Report 16785715 (Version 5)
Quarter: 2020Q1

REPORT INFORMATION
  Report Type: Spontaneous
  Country: US (occurrence: US)
  Receive Date: 20190909
  Receipt Date: 20200103
  Transmission Date: 20200409
  Serious: Yes (Other)
  Sender: FDA-Public Use
  Company Number: US-PFIZER INC-2019384887

PATIENT
  Age: 70 Year
  Sex: Female
  Weight: 85 kg

DRUGS (18)
  1. KLOR-CON [Concomitant]
     Active Substance: POTASSIUM CHLORIDE
     Dosage: UNK, 1X/DAY (M20-TAB APA)
     Dates: start: 2000
  2. HYTRIN [Concomitant]
     Active Substance: TERAZOSIN HYDROCHLORIDE
     Dosage: 2 MG, 1X/DAY
     Dates: start: 2000
  3. LASIX [Concomitant]
     Active Substance: FUROSEMIDE
     Indication: JOINT EFFUSION
     Dosage: 80 MG, 1X/DAY
     Dates: start: 2000
  4. LISINOPRIL. [Concomitant]
     Active Substance: LISINOPRIL
     Dosage: 2.5 MG, 2X/DAY
     Dates: start: 2014
  5. WARFARIN [Concomitant]
     Active Substance: WARFARIN
     Dosage: UNK, 2X/DAY, (1-5MG/2MG 2 A DAY)
  6. CELEBREX [Suspect]
     Active Substance: CELECOXIB
     Indication: FALL
     Dosage: 200 MG, 1X/DAY
     Dates: start: 2015
  7. CELEBREX [Suspect]
     Active Substance: CELECOXIB
     Indication: PAIN
     Dosage: 200 MG, 1X/DAY
     Route: 048
  8. SENNA-S [Concomitant]
     Active Substance: DOCUSATE SODIUM\SENNOSIDES
     Dosage: UNK (4 TO 5 A DAY)
     Dates: start: 2000
  9. WARFARIN [Concomitant]
     Active Substance: WARFARIN
     Dosage: 2 MG, 2X/DAY
  10. CELEBREX [Suspect]
     Active Substance: CELECOXIB
     Indication: ARTHRITIS
     Dosage: 200 MG, 1X/DAY
     Dates: start: 2012
  11. HYDROCODONE BITARTRATE. [Concomitant]
     Active Substance: HYDROCODONE BITARTRATE
     Dosage: UNK, 4X/DAY (10/325 TA)
     Dates: start: 2005
  12. WARFARIN [Concomitant]
     Active Substance: WARFARIN
     Indication: THROMBOSIS
     Dosage: 5 MG, 1X/DAY
     Dates: start: 2000
  13. ATORVASTATIN [Concomitant]
     Active Substance: ATORVASTATIN
     Dosage: 20 MG, 1X/DAY
     Dates: start: 2014
  14. ESTRACE [Concomitant]
     Active Substance: ESTRADIOL
     Dosage: 1 MG, 1X/DAY
     Dates: start: 1999
  15. HYDROMORPHONE [Concomitant]
     Active Substance: HYDROMORPHONE
     Dosage: 4 MG, 3X/DAY
     Dates: start: 2014
  16. POTASSIUM [Concomitant]
     Active Substance: POTASSIUM
     Dosage: UNK UNK, 2X/DAY
  17. WARFARIN [Concomitant]
     Active Substance: WARFARIN
     Dosage: 8 MG, DAILY
  18. ZOLOFT [Concomitant]
     Active Substance: SERTRALINE HYDROCHLORIDE
     Dosage: 100 MG, 2X/DAY
     Dates: start: 2000

REACTIONS (6)
  - Product use issue [Unknown]
  - Weight decreased [Not Recovered/Not Resolved]
  - Limb discomfort [Unknown]
  - Feeling abnormal [Unknown]
  - Thrombosis [Not Recovered/Not Resolved]
  - Condition aggravated [Not Recovered/Not Resolved]

NARRATIVE: CASE EVENT DATE: 201811
